FAERS Safety Report 8886685 (Version 1)
Quarter: 2012Q4

REPORT INFORMATION
  Report Type: 
  Country: FR (occurrence: FR)
  Receive Date: 20121105
  Receipt Date: 20121105
  Transmission Date: 20130627
  Serious: Yes (Hospitalization, Other)
  Sender: FDA-Public Use
  Company Number: PHHY2012FR100516

PATIENT
  Age: 58 Year
  Sex: Female

DRUGS (3)
  1. VOLTARENE [Suspect]
     Indication: RHEUMATOID ARTHRITIS
  2. METHOTREXATE [Suspect]
     Indication: RHEUMATOID ARTHRITIS
  3. ESOMEPRAZOLE [Suspect]
     Indication: RHEUMATOID ARTHRITIS

REACTIONS (5)
  - Sepsis [Recovered/Resolved]
  - Pyrexia [Recovered/Resolved]
  - Pyelonephritis acute [Recovered/Resolved]
  - Hepatocellular injury [Recovered/Resolved]
  - Toxicity to various agents [Recovered/Resolved]
